FAERS Safety Report 16263306 (Version 1)
Quarter: 2019Q2

REPORT INFORMATION
  Report Type: Spontaneous
  Country: SE (occurrence: SE)
  Receive Date: 20190502
  Receipt Date: 20190502
  Transmission Date: 20190711
  Serious: Yes (Other)
  Sender: FDA-Public Use
  Company Number: SE-ACCORD-125622

PATIENT
  Age: 84 Year
  Sex: Male

DRUGS (1)
  1. AMLODIPINE [Suspect]
     Active Substance: AMLODIPINE BESYLATE
     Indication: PRODUCT USED FOR UNKNOWN INDICATION
     Dates: end: 201805

REACTIONS (2)
  - Hypersensitivity vasculitis [Unknown]
  - Purpura [Unknown]

NARRATIVE: CASE EVENT DATE: 2018
